FAERS Safety Report 8366777-8 (Version None)
Quarter: 2012Q1

REPORT INFORMATION
  Report Type: 
  Country: None (occurrence: None)
  Receive Date: 20120323
  Receipt Date: 20110603
  Transmission Date: 20120608
  Serious: Yes (Other)
  Sender: FDA-Public Use
  Company Number: 163-21880-11041327

PATIENT
  Age: 63 Year
  Sex: Male
  Weight: 82.6 kg

DRUGS (3)
  1. REVLIMID [Suspect]
     Indication: MULTIPLE MYELOMA
     Dosage: 5 MG, 1 IN 1 D, PO, 5 MG, 1 IN 1 D, PO
     Route: 048
     Dates: start: 20110314
  2. REVLIMID [Suspect]
     Indication: MULTIPLE MYELOMA
     Dosage: 5 MG, 1 IN 1 D, PO, 5 MG, 1 IN 1 D, PO
     Route: 048
     Dates: start: 20100318, end: 20101013
  3. REVLIMID [Suspect]

REACTIONS (6)
  - RASH [None]
  - FATIGUE [None]
  - PRURITUS [None]
  - DECREASED APPETITE [None]
  - DRY SKIN [None]
  - HEART RATE INCREASED [None]
